FAERS Safety Report 23737964 (Version 1)
Quarter: 2024Q2

REPORT INFORMATION
  Report Type: Report from Study
  Country: US (occurrence: None)
  Receive Date: 20240412
  Receipt Date: 20240412
  Transmission Date: 20240715
  Serious: Yes (Life-Threatening)
  Sender: FDA-Public Use
  Company Number: 2020SE34903

PATIENT
  Age: 21476 Day
  Sex: Male

DRUGS (1)
  1. SYMBICORT [Suspect]
     Active Substance: BUDESONIDE\FORMOTEROL FUMARATE DIHYDRATE
     Dosage: 160/4.5 MCG, UNKNOWN DOSE AND FREQUENCY UNKNOWN
     Route: 055

REACTIONS (2)
  - Pulmonary function test decreased [Not Recovered/Not Resolved]
  - Near death experience [Recovered/Resolved]
